FAERS Safety Report 18621997 (Version 3)
Quarter: 2021Q1

REPORT INFORMATION
  Report Type: Spontaneous
  Country: US (occurrence: US)
  Receive Date: 20201215
  Receipt Date: 20210112
  Transmission Date: 20210419
  Serious: No
  Sender: FDA-Public Use
  Company Number: US-JNJFOC-20201207674

PATIENT
  Age: 46 Year
  Sex: Female

DRUGS (4)
  1. SIMPONI [Suspect]
     Active Substance: GOLIMUMAB
     Indication: ACCIDENTAL EXPOSURE TO PRODUCT
  2. PROTONIX [Concomitant]
     Active Substance: PANTOPRAZOLE SODIUM
     Indication: PRODUCT USED FOR UNKNOWN INDICATION
     Route: 065
  3. SIMPONI [Suspect]
     Active Substance: GOLIMUMAB
     Indication: RHEUMATOID ARTHRITIS
     Route: 058
     Dates: start: 20200530
  4. SIMPONI [Suspect]
     Active Substance: GOLIMUMAB
     Indication: PSORIASIS

REACTIONS (4)
  - Accidental exposure to product [Unknown]
  - Product dose omission issue [Unknown]
  - Wrong technique in product usage process [Unknown]
  - Drug delivery system malfunction [Unknown]

NARRATIVE: CASE EVENT DATE: 20201202
